FAERS Safety Report 5480758-3 (Version None)
Quarter: 2007Q4

REPORT INFORMATION
  Report Type: 
  Country: None (occurrence: None)
  Receive Date: 20071009
  Receipt Date: 20070928
  Transmission Date: 20080405
  Serious: Yes (Death, Other)
  Sender: FDA-Public Use
  Company Number: US-SHR-US-2007-006389

PATIENT
  Age: 82 Year
  Sex: Male

DRUGS (19)
  1. MAGNEVIST [Suspect]
     Indication: NUCLEAR MAGNETIC RESONANCE IMAGING BRAIN
     Dosage: 20 ML, 1 DOSE
     Route: 042
     Dates: start: 20010613, end: 20010613
  2. LOPRESSOR [Concomitant]
     Dosage: 50 MG, 3X/DAY
     Route: 048
  3. ALLOPURINOL [Concomitant]
     Dosage: 100 MG, 1X/DAY
     Route: 048
  4. ZOCOR [Concomitant]
     Dosage: 10 MG, 1X/DAY
     Route: 048
  5. LEVOTHYROXINE SODIUM [Concomitant]
     Dosage: 25 A?G, 1X/DAY
     Route: 048
  6. NEPHROCAPS [Concomitant]
     Dosage: 1 CAP(S), 1X/DAY
     Route: 048
  7. INSULIN [Concomitant]
     Dosage: SLIDING SCALE
     Route: 058
  8. NORTRIPTYLINE HCL [Concomitant]
     Dosage: 10 UNK, BED T.
     Route: 048
  9. GLIPIZIDE [Concomitant]
     Dosage: 2.5 MG, QAM
     Route: 048
  10. NEXIUM [Concomitant]
     Dosage: 40 MG, 1X/DAY
     Route: 048
  11. MIRALAX [Concomitant]
     Dosage: 17 G, 2X/DAY
     Route: 048
  12. ALBUTEROL [Concomitant]
     Route: 055
  13. OS-CAL + D ^SMITHKLINE BEECHAM^ [Concomitant]
     Dosage: 1500 MG, BED T.
  14. EPOGEN [Concomitant]
     Dosage: 6000 UNITS WITH DIALYSIS
     Route: 042
     Dates: start: 20050811
  15. NEURONTIN [Concomitant]
     Dosage: 200 MG, 3X/DAY
     Route: 048
     Dates: start: 20030827
  16. RENAGEL [Concomitant]
     Dosage: 40 MG, 3X/DAY
     Dates: start: 20010827
  17. DIGOXIN [Concomitant]
  18. PREDNISONE [Concomitant]
     Indication: TEMPORAL ARTERITIS
  19. MECLIZINE [Concomitant]

REACTIONS (2)
  - CORONARY ARTERY THROMBOSIS [None]
  - NEPHROGENIC SYSTEMIC FIBROSIS [None]
